FAERS Safety Report 20979045 (Version 4)
Quarter: 2022Q4

REPORT INFORMATION
  Report Type: Report from Study
  Country: US (occurrence: US)
  Receive Date: 20220619
  Receipt Date: 20221229
  Transmission Date: 20230112
  Serious: Yes (Other)
  Sender: FDA-Public Use
  Company Number: US-ABBVIE-22K-163-4437474-00

PATIENT
  Age: 86 Year
  Sex: Female

DRUGS (3)
  1. IMBRUVICA [Suspect]
     Active Substance: IBRUTINIB
     Indication: Chronic myeloid leukaemia
     Dosage: 280 MILLIGRAM
     Route: 048
     Dates: start: 20210315
  2. Amoxy-Clav [Concomitant]
     Indication: Cellulitis
     Dosage: 500/125MG FOR 10 DAYS
     Route: 065
  3. TOBRAMYCIN [Concomitant]
     Active Substance: TOBRAMYCIN
     Indication: Product used for unknown indication
     Route: 065

REACTIONS (12)
  - Macular degeneration [Unknown]
  - Intervertebral disc degeneration [Unknown]
  - Hiatus hernia [Unknown]
  - Weight increased [Unknown]
  - Fall [Unknown]
  - Hypertension [Unknown]
  - Arthritis [Unknown]
  - Hunger [Unknown]
  - Memory impairment [Unknown]
  - Dacryocystitis [Unknown]
  - Cellulitis [Not Recovered/Not Resolved]
  - Headache [Not Recovered/Not Resolved]

NARRATIVE: CASE EVENT DATE: 20220223
